FAERS Safety Report 4306755-9 (Version None)
Quarter: 2004Q1

REPORT INFORMATION
  Report Type: 
  Country: None (occurrence: None)
  Receive Date: 20040227
  Receipt Date: 20040205
  Transmission Date: 20041129
  Serious: Yes (Death)
  Sender: FDA-Public Use
  Company Number: US-BRISTOL-MYERS SQUIBB COMPANY-12498036

PATIENT
  Age: 18 Year
  Sex: Female
  Weight: 86 kg

DRUGS (6)
  1. ABILIFY [Suspect]
     Indication: PSYCHOTIC DISORDER
     Route: 048
     Dates: start: 20030408
  2. ABILIFY [Suspect]
     Indication: AGITATION
     Route: 048
     Dates: start: 20030408
  3. TRILEPTAL [Concomitant]
     Dosage: TAKEN FOR ^YEARS^ - DOSE RANGED FROM 150-750 MG BID
  4. RISPERDAL [Concomitant]
     Dosage: TITRATING DOWN; DAILY DOSE AT TIME OF DEATH WAS 2-3MG DAILY
  5. CONTRACEPTIVE [Concomitant]
  6. MULTI-VITAMIN [Concomitant]

REACTIONS (3)
  - CONVULSION [None]
  - HEAD BANGING [None]
  - HYPOVENTILATION [None]
